FAERS Safety Report 6019525-0 (Version None)
Quarter: 2008Q4

REPORT INFORMATION
  Report Type: 
  Country: None (occurrence: None)
  Receive Date: 20081224
  Receipt Date: 20081215
  Transmission Date: 20090506
  Serious: Yes (Death)
  Sender: FDA-Public Use
  Company Number: CA-ELI_LILLY_AND_COMPANY-CA200810003913

PATIENT
  Sex: Female
  Weight: 67.12 kg

DRUGS (16)
  1. CYMBALTA [Suspect]
     Indication: DIABETIC NEUROPATHY
     Dosage: 60 MG, DAILY (1/D)
     Dates: start: 20080307
  2. METFORMIN HCL [Concomitant]
     Dosage: 500 MG, UNK
  3. CLOPIDOGREL [Concomitant]
     Dosage: 75 MG, DAILY (1/D)
  4. RAMIPRIL [Concomitant]
     Dosage: 10 MG, DAILY (1/D)
  5. BISOPROLOL FUMARATE [Concomitant]
     Dosage: 5 MG, 2/D
  6. FUROSEMIDE [Concomitant]
     Dosage: 40 MG, UNK
  7. SPIRONOLACTONE [Concomitant]
     Dosage: 100 MG, UNK
  8. ATORVASTATIN CALCIUM [Concomitant]
     Dosage: 80 MG, DAILY (1/D)
  9. NITROGLYCERIN [Concomitant]
     Route: 061
  10. ASPIRIN [Concomitant]
     Dosage: 81 MG, DAILY (1/D)
  11. GABAPENTIN [Concomitant]
     Dosage: 400 MG, UNK
  12. FLUOXETINE [Concomitant]
     Dosage: 20 MG, DAILY (1/D)
  13. PERCOCET [Concomitant]
     Dosage: UNK, AS NEEDED
  14. TYLENOL W/ CODEINE NO. 3 [Concomitant]
  15. DICLOFENAC SODIUM [Concomitant]
  16. ARTHROTEC [Concomitant]

REACTIONS (1)
  - MYOCARDIAL INFARCTION [None]
